FAERS Safety Report 8489886-1 (Version None)
Quarter: 2012Q3

REPORT INFORMATION
  Report Type: 
  Country: None (occurrence: None)
  Receive Date: 20120705
  Receipt Date: 20120628
  Transmission Date: 20120928
  Serious: Yes (Hospitalization)
  Sender: FDA-Public Use
  Company Number: PHHY2011ES44810

PATIENT
  Age: 10 Year
  Sex: Female

DRUGS (12)
  1. EPIRUBICIN [Concomitant]
     Dosage: 25 MG/M2, UNK
  2. METHOTREXATE [Concomitant]
     Indication: ACUTE LYMPHOCYTIC LEUKAEMIA
     Dosage: 5 G/M2
  3. DEXAMETHASONE SODIUM PHOSPHATE [Suspect]
     Indication: ACUTE LYMPHOCYTIC LEUKAEMIA
     Dosage: 8 MG/M2, PER DAY
     Route: 048
  4. CYTARABINE [Concomitant]
     Indication: ACUTE LYMPHOCYTIC LEUKAEMIA
     Dosage: 200 MG/M2, UNK
  5. DAUNORUBICIN HCL [Concomitant]
     Indication: ACUTE LYMPHOCYTIC LEUKAEMIA
  6. HYDROCORTISONE [Suspect]
     Indication: ACUTE LYMPHOCYTIC LEUKAEMIA
     Dosage: 30 MG, UNK
  7. METHOTREXATE W/CYTARABINE/HYDROCORTISONE [Concomitant]
  8. ASPARAGINASE [Suspect]
     Indication: ACUTE LYMPHOCYTIC LEUKAEMIA
     Dosage: 10000 IU/M2, PER DAY
  9. VINCRISTINE [Concomitant]
     Indication: ACUTE LYMPHOCYTIC LEUKAEMIA
     Dosage: 1.5 MG/M2, UNK
  10. CYCLOPHOSPHAMIDE [Concomitant]
     Indication: ACUTE LYMPHOCYTIC LEUKAEMIA
     Dosage: 1 G/M2
  11. MERCAPTOPURINE [Concomitant]
  12. PREDNISONE [Suspect]
     Indication: ACUTE LYMPHOCYTIC LEUKAEMIA

REACTIONS (15)
  - HYPONATRAEMIA [None]
  - OEDEMA [None]
  - HYPERTRIGLYCERIDAEMIA [None]
  - CUSHINGOID [None]
  - HEPATIC ENZYME INCREASED [None]
  - MALAISE [None]
  - NERVOUS SYSTEM DISORDER [None]
  - HYPERVISCOSITY SYNDROME [None]
  - ASTHENIA [None]
  - DECREASED APPETITE [None]
  - ABDOMINAL PAIN [None]
  - HEADACHE [None]
  - PALLOR [None]
  - SOMNOLENCE [None]
  - COAGULOPATHY [None]
